FAERS Safety Report 17074825 (Version 1)
Quarter: 2019Q4

REPORT INFORMATION
  Report Type: Spontaneous
  Country: US (occurrence: US)
  Receive Date: 20191026
  Receipt Date: 20191026
  Transmission Date: 20200122
  Serious: Yes (Hospitalization)
  Sender: FDA-Public Use
  Company Number: None

PATIENT
  Age: 67 Year
  Sex: Female
  Weight: 58.3 kg

DRUGS (1)
  1. CISPLATIN. [Suspect]
     Active Substance: CISPLATIN
     Dates: end: 20191015

REACTIONS (5)
  - Sinus tachycardia [None]
  - Corynebacterium test positive [None]
  - Hypomagnesaemia [None]
  - Pyrexia [None]
  - Candida test positive [None]

NARRATIVE: CASE EVENT DATE: 20191018
